FAERS Safety Report 15331061 (Version 10)
Quarter: 2020Q1

REPORT INFORMATION
  Report Type: Report from Study
  Country: US (occurrence: US)
  Receive Date: 20180829
  Receipt Date: 20200221
  Transmission Date: 20200409
  Serious: Yes (Hospitalization, Other)
  Sender: FDA-Public Use
  Company Number: US-SA-2018SA203469

PATIENT
  Age: 29 Year
  Sex: Male

DRUGS (2)
  1. AGALSIDASE BETA [Suspect]
     Active Substance: AGALSIDASE BETA
     Dosage: 60 MG, QW
     Route: 042
     Dates: start: 201809
  2. AGALSIDASE BETA [Suspect]
     Active Substance: AGALSIDASE BETA
     Indication: FABRY^S DISEASE
     Dosage: 60 MG, QW
     Route: 042
     Dates: start: 20180717

REACTIONS (19)
  - Chest pain [Not Recovered/Not Resolved]
  - Gastritis [Not Recovered/Not Resolved]
  - Weight decreased [Unknown]
  - Hyperhidrosis [Unknown]
  - Heart rate decreased [Not Recovered/Not Resolved]
  - Fatigue [Unknown]
  - Limb discomfort [Not Recovered/Not Resolved]
  - Dehydration [Unknown]
  - Haematemesis [Not Recovered/Not Resolved]
  - Diarrhoea [Not Recovered/Not Resolved]
  - Plantar fasciitis [Not Recovered/Not Resolved]
  - Pain [Unknown]
  - Deafness [Unknown]
  - Vomiting [Not Recovered/Not Resolved]
  - Gastric haemorrhage [Unknown]
  - Product use issue [Unknown]
  - Product administration error [Unknown]
  - Influenza [Recovered/Resolved]
  - Oedema peripheral [Not Recovered/Not Resolved]

NARRATIVE: CASE EVENT DATE: 20180720
